FAERS Safety Report 21631351 (Version 3)
Quarter: 2022Q4

REPORT INFORMATION
  Report Type: Spontaneous
  Country: US (occurrence: US)
  Receive Date: 20221123
  Receipt Date: 20221229
  Transmission Date: 20230113
  Serious: Yes (Hospitalization)
  Sender: FDA-Public Use
  Company Number: US-UNITED THERAPEUTICS-UNT-2022-028375

PATIENT
  Sex: Female
  Weight: 68.027 kg

DRUGS (3)
  1. REMODULIN [Suspect]
     Active Substance: TREPROSTINIL
     Indication: Pulmonary arterial hypertension
     Dosage: UNK, CONTINUING
     Route: 058
     Dates: start: 20210219
  2. REMODULIN [Suspect]
     Active Substance: TREPROSTINIL
     Dosage: 0.0632 ?G/KG, CONTINUING
     Route: 058
  3. SILDENAFIL [Concomitant]
     Active Substance: SILDENAFIL
     Indication: Product used for unknown indication
     Dosage: UNK
     Route: 065

REACTIONS (10)
  - Influenza [Unknown]
  - COVID-19 [Unknown]
  - Pain in extremity [Unknown]
  - Device physical property issue [Unknown]
  - Device malfunction [Unknown]
  - Infusion site pain [Recovering/Resolving]
  - Infusion site infection [Recovering/Resolving]
  - Infusion site erythema [Recovering/Resolving]
  - Infusion site swelling [Recovering/Resolving]
  - Infusion site rash [Recovering/Resolving]

NARRATIVE: CASE EVENT DATE: 20220101
